FAERS Safety Report 26187444 (Version 1)
Quarter: 2025Q4

REPORT INFORMATION
  Report Type: Spontaneous
  Country: CH (occurrence: CH)
  Receive Date: 20251222
  Receipt Date: 20251222
  Transmission Date: 20260117
  Serious: Yes (Other)
  Sender: PFIZER
  Company Number: CH-MLMSERVICE-20251204-PI731452-00306-7

PATIENT
  Age: 42 Year
  Sex: Female

DRUGS (8)
  1. METHYLPREDNISOLONE SODIUM SUCCINATE [Suspect]
     Active Substance: METHYLPREDNISOLONE SODIUM SUCCINATE
     Indication: Placental disorder
     Dosage: 1 MG/KG (INTRAVENOUS BOLUS AT EACH IVIG INFUSION; THERAPY INITIATED AT 6-8 WG)
     Route: 040
  2. TACROLIMUS [Suspect]
     Active Substance: TACROLIMUS
     Indication: Placental disorder
     Dosage: UNK, 2X/DAY (PO BID FOR TROUGH LEVELS 68 NG/ML; THERAPY INITIATED AT 6-8 WG)
     Route: 048
  3. HYDROXYCHLOROQUINE [Suspect]
     Active Substance: HYDROXYCHLOROQUINE
     Indication: Placental disorder
     Dosage: 5 MG/KG, 1X/DAY (PO BID 5 MG/KG/DAY; THERAPY INITIATED AT 6-8 WG)
     Route: 048
  4. PREDNISOLONE [Suspect]
     Active Substance: PREDNISOLONE
     Indication: Placental disorder
     Dosage: 10 MG, 1X/DAY (THERAPY INITIATED AT 6-8 WG)
     Route: 048
  5. ASPIRIN [Concomitant]
     Active Substance: ASPIRIN
     Indication: Placental disorder
     Dosage: 100 MG, 1X/DAY (THERAPY INITIATED AT 6-8 WG)
     Route: 048
  6. ASPIRIN [Concomitant]
     Active Substance: ASPIRIN
     Indication: Thrombosis prophylaxis
  7. HUMAN IMMUNOGLOBULIN G [Concomitant]
     Active Substance: HUMAN IMMUNOGLOBULIN G
     Indication: Placental disorder
     Dosage: 2000 MG/KG, MONTHLY
     Route: 042
  8. HUMAN IMMUNOGLOBULIN G [Concomitant]
     Active Substance: HUMAN IMMUNOGLOBULIN G
     Dosage: 2000 MG/KG, BI-MONTHLY
     Route: 042

REACTIONS (3)
  - Gestational diabetes [Unknown]
  - Maternal exposure during pregnancy [Unknown]
  - Off label use [Unknown]
